FAERS Safety Report 6784293 (Version 1)
Quarter: 2020Q3

REPORT INFORMATION
  Report Type: Report from Study
  Country: US (occurrence: US)
  Receive Date: 20081010
  Receipt Date: 20081010
  Transmission Date: 20201105
  Serious: Yes (Hospitalization)
  Sender: FDA-Public Use
  Company Number: US-ROCHE-589101

PATIENT
  Age: 78 Year
  Sex: Female

DRUGS (5)
  1. DIGOXIN. [Concomitant]
     Active Substance: DIGOXIN
  2. OXYCODONE [Concomitant]
     Active Substance: OXYCODONE
  3. ISOSORBIDE. [Concomitant]
     Active Substance: ISOSORBIDE
  4. IBANDRONIC ACID. [Suspect]
     Active Substance: IBANDRONIC ACID
     Indication: OSTEOPOROSIS
     Route: 065
  5. ASA [Concomitant]
     Active Substance: ASPIRIN

REACTIONS (1)
  - Spinal fracture [Unknown]
